FAERS Safety Report 14339498 (Version 3)
Quarter: 2019Q3

REPORT INFORMATION
  Report Type: Spontaneous
  Country: FR (occurrence: FR)
  Receive Date: 20171230
  Receipt Date: 20190704
  Transmission Date: 20191004
  Serious: Yes (Death, Hospitalization, Other)
  Sender: FDA-Public Use
  Company Number: FR-AUROBINDO-AUR-APL-2017-48158

PATIENT

DRUGS (19)
  1. METHYLPREDNISOLONE. [Suspect]
     Active Substance: METHYLPREDNISOLONE
     Dosage: 1 MILLIGRAM/KILOGRAM
     Route: 042
     Dates: end: 20161224
  2. CYCLOSPORINE. [Concomitant]
     Active Substance: CYCLOSPORINE
     Indication: HAEMOPHAGOCYTIC LYMPHOHISTIOCYTOSIS
     Dosage: 10.6 MILLIGRAM, ONCE A DAY
     Route: 042
     Dates: start: 20161109
  3. PARACETAMOL [Suspect]
     Active Substance: ACETAMINOPHEN
     Dosage: 60 MG, 6 HOUR
     Route: 048
     Dates: start: 20161110
  4. CAMPATH [Suspect]
     Active Substance: ALEMTUZUMAB
     Dosage: 5.5 MILLIGRAM, ONCE A DAY
     Route: 041
     Dates: start: 20161111, end: 20161112
  5. PARACETAMOL [Suspect]
     Active Substance: ACETAMINOPHEN
     Indication: PREMEDICATION
     Dosage: 2.5 MILLIGRAM, ONCE A DAY
     Route: 042
     Dates: start: 20161124, end: 20161125
  6. PARACETAMOL [Suspect]
     Active Substance: ACETAMINOPHEN
     Dosage: 7.5 MILLIGRAM/KILOGRAM, ONCE A DAY
     Route: 042
     Dates: start: 20161125, end: 20161126
  7. CAMPATH [Suspect]
     Active Substance: ALEMTUZUMAB
     Dosage: 2.5 MILLIGRAM
     Route: 041
     Dates: start: 20161125, end: 20161125
  8. METHYLPREDNISOLONE. [Suspect]
     Active Substance: METHYLPREDNISOLONE
     Dosage: 140 MILLIGRAM, ONCE A DAY
     Route: 042
     Dates: start: 20161124, end: 20161125
  9. BACTRIM [Suspect]
     Active Substance: SULFAMETHOXAZOLE\TRIMETHOPRIM
     Dosage: 140 MILLIGRAM, ONCE A DAY
     Route: 048
     Dates: start: 20161114
  10. CAMPATH [Suspect]
     Active Substance: ALEMTUZUMAB
     Indication: FAMILIAL HAEMOPHAGOCYTIC LYMPHOHISTIOCYTOSIS
     Dosage: 2.75 MILLIGRAM
     Route: 041
     Dates: start: 20161110, end: 20161110
  11. CAMPATH [Suspect]
     Active Substance: ALEMTUZUMAB
     Dosage: 5.4 MILLIGRAM
     Route: 041
     Dates: start: 20161124, end: 20161124
  12. METHYLPREDNISOLONE. [Suspect]
     Active Substance: METHYLPREDNISOLONE
     Dosage: 0.9 UNK, UNK
     Route: 042
     Dates: start: 20151125, end: 20161126
  13. METHYLPREDNISOLONE. [Suspect]
     Active Substance: METHYLPREDNISOLONE
     Dosage: 0.3 MILLIGRAM/KILOGRAM, 8 HOUR
     Route: 042
     Dates: start: 20151125, end: 20161126
  14. CYCLOSPORINE. [Concomitant]
     Active Substance: CYCLOSPORINE
     Indication: PREMEDICATION
     Dosage: 7 MILLIGRAM, ONCE A DAY
     Route: 042
     Dates: start: 20161110
  15. UVESTEROL D [Concomitant]
     Active Substance: ERGOCALCIFEROL
     Indication: NUTRITIONAL SUPPLEMENTATION
     Dosage: 1 DOSAGE FORM, ONCE A DAY
     Route: 048
     Dates: start: 20161110, end: 20161216
  16. SOLU-MEDROL [Concomitant]
     Active Substance: METHYLPREDNISOLONE SODIUM SUCCINATE
     Indication: HAEMOPHAGOCYTIC LYMPHOHISTIOCYTOSIS
     Dosage: 1.6 MILLIGRAM, ONCE A DAY
     Route: 042
     Dates: start: 20161109, end: 20161224
  17. DEXCHLORPHENIRAMINE [Suspect]
     Active Substance: DEXCHLORPHENIRAMINE
     Indication: PREMEDICATION
     Dosage: 2.5 MILLIGRAM, ONCE A DAY
     Route: 042
     Dates: start: 20161124, end: 20161125
  18. METHYLPREDNISOLONE. [Suspect]
     Active Substance: METHYLPREDNISOLONE
     Indication: FAMILIAL HAEMOPHAGOCYTIC LYMPHOHISTIOCYTOSIS
     Dosage: 12 MILLIGRAM, ONCE A DAY
     Route: 042
     Dates: start: 20151110
  19. BACTRIM [Suspect]
     Active Substance: SULFAMETHOXAZOLE\TRIMETHOPRIM
     Indication: PROPHYLAXIS
     Dosage: 40 MILLIGRAM, ONCE A DAY
     Route: 042
     Dates: start: 20161119, end: 20161205

REACTIONS (16)
  - Pyrexia [Recovered/Resolved]
  - Septic embolus [Unknown]
  - Livedo reticularis [Recovered/Resolved]
  - Parenteral nutrition [Fatal]
  - Pseudomonal sepsis [Recovered/Resolved]
  - Neutropenia [Recovered/Resolved]
  - Chills [Recovered/Resolved]
  - Tachycardia [Recovered/Resolved]
  - Pseudomonal bacteraemia [Recovering/Resolving]
  - Pseudomonas test positive [Recovered/Resolved]
  - Pulmonary embolism [Recovered/Resolved]
  - Injection site haemorrhage [Unknown]
  - Accidental overdose [Unknown]
  - Sepsis [Recovering/Resolving]
  - Streptococcal sepsis [Recovered/Resolved]
  - Lung abscess [Recovering/Resolving]

NARRATIVE: CASE EVENT DATE: 20161128
